FAERS Safety Report 6517710-2 (Version None)
Quarter: 2009Q4

REPORT INFORMATION
  Report Type: 
  Country: None (occurrence: None)
  Receive Date: 20091224
  Receipt Date: 20091217
  Transmission Date: 20100525
  Serious: Yes (Death)
  Sender: FDA-Public Use
  Company Number: DE-BRISTOL-MYERS SQUIBB COMPANY-14858187

PATIENT
  Age: 38 Year
  Sex: Male
  Weight: 100 kg

DRUGS (3)
  1. CETUXIMAB [Suspect]
     Indication: NON-SMALL CELL LUNG CANCER
     Dosage: STRENGTH; 5MG/ML MOST RECENT INFUSION ON 04-NOV-2009
     Route: 042
     Dates: start: 20091021
  2. CARBOPLATIN [Suspect]
     Indication: NON-SMALL CELL LUNG CANCER
     Dosage: 1 DF = AUC 5 (DAY 1 OF 21 DAY CYCLE) MOST RECENT INFUSION ON 21-OCT-2009
     Route: 042
     Dates: start: 20091021
  3. GEMCITABINE [Suspect]
     Indication: NON-SMALL CELL LUNG CANCER
     Dosage: DAYS 1, 8 OF 21 DAY CYCLE MOST RECENT INFUSION ON 28-OCT-2009
     Route: 042
     Dates: start: 20091021

REACTIONS (1)
  - DEATH [None]
